FAERS Safety Report 9306399 (Version 1)
Quarter: 2013Q2

REPORT INFORMATION
  Report Type: Spontaneous
  Country: US (occurrence: US)
  Receive Date: 20130523
  Receipt Date: 20130523
  Transmission Date: 20140414
  Serious: Yes (Hospitalization)
  Sender: FDA-Public Use
  Company Number: US-ABBOTT-13P-163-1086074-00

PATIENT
  Age: 42 Year
  Sex: Female

DRUGS (3)
  1. SYNTHROID [Suspect]
     Indication: HYPOTHYROIDISM
     Route: 048
  2. BIAXIN [Suspect]
     Indication: ENDODONTIC PROCEDURE
     Dosage: UNKNOWN DOSE
  3. BIAXIN [Suspect]
     Indication: INFECTION PROPHYLAXIS

REACTIONS (8)
  - Syncope [Recovered/Resolved]
  - Urticaria [Recovered/Resolved]
  - Rash [Recovered/Resolved]
  - Eye swelling [Recovered/Resolved]
  - Local swelling [Recovered/Resolved]
  - Pyrexia [Recovered/Resolved]
  - Adverse reaction [Not Recovered/Not Resolved]
  - Dental caries [Recovered/Resolved]
